FAERS Safety Report 5021071-8 (Version None)
Quarter: 2006Q2

REPORT INFORMATION
  Report Type: 
  Country: None (occurrence: None)
  Receive Date: 20060608
  Receipt Date: 20060531
  Transmission Date: 20061013
  Serious: Yes (Hospitalization, Other)
  Sender: FDA-Public Use
  Company Number: US-JNJFOC-20060200563

PATIENT
  Age: 42 Year
  Sex: Female

DRUGS (3)
  1. RISPERDAL [Suspect]
     Indication: SCHIZOAFFECTIVE DISORDER
  2. PROVIGIL [Suspect]
     Indication: SOMNOLENCE
     Route: 048
  3. LEXAPRO [Suspect]
     Indication: SCHIZOAFFECTIVE DISORDER

REACTIONS (4)
  - FEELING ABNORMAL [None]
  - SOMNOLENCE [None]
  - STEVENS-JOHNSON SYNDROME [None]
  - TOXIC EPIDERMAL NECROLYSIS [None]
